FAERS Safety Report 5690443-0 (Version None)
Quarter: 2008Q1

REPORT INFORMATION
  Report Type: 
  Country: None (occurrence: None)
  Receive Date: 20080331
  Receipt Date: 20080331
  Transmission Date: 20080703
  Serious: Yes (Hospitalization)
  Sender: FDA-Public Use
  Company Number: None

PATIENT
  Age: 82 Year
  Sex: Male

DRUGS (2)
  1. SIMVASTATIN [Suspect]
     Indication: HYPERLIPIDAEMIA
     Dosage: 40MG HS PO
     Route: 048
     Dates: start: 20041026, end: 20071101
  2. GEMFIBROZIL [Suspect]
     Indication: HYPERLIPIDAEMIA
     Dosage: 600MG BID PO
     Route: 048
     Dates: start: 20001212, end: 20071101

REACTIONS (2)
  - HEPATIC ENZYME ABNORMAL [None]
  - RHABDOMYOLYSIS [None]
